FAERS Safety Report 12840323 (Version 1)
Quarter: 2016Q4

REPORT INFORMATION
  Report Type: Spontaneous
  Country: IT (occurrence: IT)
  Receive Date: 20161012
  Receipt Date: 20161012
  Transmission Date: 20170207
  Serious: Yes (Other)
  Sender: FDA-Public Use
  Company Number: IT-PFIZER INC-3045880

PATIENT
  Age: 68 Year
  Sex: Female

DRUGS (10)
  1. FLUOROURACIL. [Suspect]
     Active Substance: FLUOROURACIL
     Dosage: 560 MG, FREQ: CYCLICAL
     Route: 040
     Dates: start: 20150826, end: 20150826
  2. ZALTRAP [Suspect]
     Active Substance: ZIV-AFLIBERCEPT
     Dosage: 220 MG, FREQ: CYCLICAL
     Route: 041
     Dates: start: 20150826, end: 20150826
  3. FLUOROURACIL. [Suspect]
     Active Substance: FLUOROURACIL
     Dosage: 3600 MG, FREQ: CYCLICAL
     Route: 041
     Dates: start: 20150909, end: 20150909
  4. FLUOROURACIL. [Suspect]
     Active Substance: FLUOROURACIL
     Indication: COLON CANCER METASTATIC
     Dosage: 560 MG, FREQ: CYCLICAL
     Route: 040
     Dates: start: 20150909, end: 20150909
  5. FLUOROURACIL. [Suspect]
     Active Substance: FLUOROURACIL
     Dosage: 4000 MG, FREQ: CYCLICAL
     Route: 041
     Dates: start: 20150826, end: 20150826
  6. IRINOTECAN HCL [Suspect]
     Active Substance: IRINOTECAN HYDROCHLORIDE
     Indication: COLON CANCER METASTATIC
     Dosage: 250 MG, FREQ: CYCLICAL
     Route: 041
     Dates: start: 20150909, end: 20150909
  7. LEUCOVORIN /00566701/ [Suspect]
     Active Substance: LEUCOVORIN
     Dosage: 280 MG, FREQ: CYCLICAL
     Route: 041
     Dates: start: 20150826, end: 20150826
  8. ZALTRAP [Suspect]
     Active Substance: ZIV-AFLIBERCEPT
     Indication: COLON CANCER METASTATIC
     Dosage: 220 MG, FREQ: CYCLICAL
     Route: 041
     Dates: start: 20150909, end: 20150909
  9. LEUCOVORIN /00566701/ [Suspect]
     Active Substance: LEUCOVORIN
     Indication: COLON CANCER METASTATIC
     Dosage: 280 MG, FREQ: CYCLICAL
     Route: 041
     Dates: start: 20150909, end: 20150909
  10. IRINOTECAN HCL [Suspect]
     Active Substance: IRINOTECAN HYDROCHLORIDE
     Dosage: 250 MG, FREQ: CYCLICAL
     Route: 041
     Dates: start: 20150826, end: 20150826

REACTIONS (2)
  - Proteinuria [Not Recovered/Not Resolved]
  - Hypertensive crisis [Recovered/Resolved]

NARRATIVE: CASE EVENT DATE: 20150918
